FAERS Safety Report 8927344 (Version 2)
Quarter: 2012Q4

REPORT INFORMATION
  Report Type: Report from Study
  Country: DE (occurrence: DE)
  Receive Date: 20121127
  Receipt Date: 20121209
  Transmission Date: 20130627
  Serious: Yes (Hospitalization)
  Sender: FDA-Public Use
  Company Number: DE-US-EMD SERONO, INC.-7177736

PATIENT
  Sex: Female
  Weight: 39 kg

DRUGS (2)
  1. SAIZEN [Suspect]
     Indication: GROWTH HORMONE DEFICIENCY
     Route: 058
     Dates: start: 20120625, end: 20121017
  2. SAIZEN [Suspect]
     Dates: start: 20121025

REACTIONS (4)
  - Yersinia infection [Recovered/Resolved]
  - Arthritis reactive [Recovered/Resolved]
  - Uveitis [Recovered/Resolved]
  - Asthenia [Recovered/Resolved]
